FAERS Safety Report 8759084 (Version 2)
Quarter: 2013Q4

REPORT INFORMATION
  Report Type: Spontaneous
  Country: US (occurrence: US)
  Receive Date: 20120829
  Receipt Date: 20131101
  Transmission Date: 20140711
  Serious: No
  Sender: FDA-Public Use
  Company Number: US-009507513-1208USA001105

PATIENT
  Sex: Male

DRUGS (2)
  1. DULERA [Suspect]
     Indication: EMPHYSEMA
     Dosage: UNK
     Route: 055
     Dates: start: 20120730
  2. DULERA [Suspect]
     Indication: BRONCHITIS

REACTIONS (3)
  - Chest discomfort [Not Recovered/Not Resolved]
  - Fatigue [Not Recovered/Not Resolved]
  - Dizziness [Not Recovered/Not Resolved]
